FAERS Safety Report 13070541 (Version 2)
Quarter: 2016Q4

REPORT INFORMATION
  Report Type: Spontaneous
  Country: CA (occurrence: CA)
  Receive Date: 20161229
  Receipt Date: 20161230
  Transmission Date: 20170207
  Serious: Yes (Other)
  Sender: FDA-Public Use
  Company Number: CA-AMGEN-CANSP2016181934

PATIENT
  Age: 73 Year
  Sex: Male

DRUGS (6)
  1. ENBREL [Suspect]
     Active Substance: ETANERCEPT
     Indication: RHEUMATOID ARTHRITIS
     Dosage: UNK
     Route: 065
  2. METHOTREXATE. [Suspect]
     Active Substance: METHOTREXATE
     Indication: RHEUMATOID ARTHRITIS
     Dosage: 5 MG, BID
     Route: 048
  3. ARAVA [Suspect]
     Active Substance: LEFLUNOMIDE
     Indication: PRODUCT USED FOR UNKNOWN INDICATION
     Dosage: UNK
     Route: 065
  4. GOLD [Suspect]
     Active Substance: GOLD
     Indication: PRODUCT USED FOR UNKNOWN INDICATION
     Dosage: UNK
     Route: 065
  5. ORENCIA [Concomitant]
     Active Substance: ABATACEPT
     Dosage: UNK
  6. DEMEROL [Suspect]
     Active Substance: MEPERIDINE HYDROCHLORIDE
     Indication: PRODUCT USED FOR UNKNOWN INDICATION
     Dosage: UNK
     Route: 065

REACTIONS (12)
  - Anaemia [Unknown]
  - Limb discomfort [Unknown]
  - Diarrhoea [Unknown]
  - Pain in extremity [Unknown]
  - Diabetes mellitus [Unknown]
  - Arthropathy [Unknown]
  - Intestinal polypectomy [Unknown]
  - Bladder polypectomy [Unknown]
  - Drug effect decreased [Unknown]
  - Liver function test increased [Unknown]
  - Joint range of motion decreased [Unknown]
  - Memory impairment [Unknown]

NARRATIVE: CASE EVENT DATE: 201606
